FAERS Safety Report 5327897-5 (Version None)
Quarter: 2007Q2

REPORT INFORMATION
  Report Type: 
  Country: None (occurrence: None)
  Receive Date: 20070517
  Receipt Date: 20070507
  Transmission Date: 20071010
  Serious: Yes (Other)
  Sender: FDA-Public Use
  Company Number: PL-PFIZER INC-2007036796

PATIENT
  Age: 60 Year
  Sex: Female

DRUGS (1)
  1. XALATAN [Suspect]

REACTIONS (1)
  - HYPERSENSITIVITY [None]
